FAERS Safety Report 11761264 (Version 1)
Quarter: 2015Q4

REPORT INFORMATION
  Report Type: Spontaneous
  Country: US (occurrence: US)
  Receive Date: 20151120
  Receipt Date: 20151120
  Transmission Date: 20160304
  Serious: No
  Sender: FDA-Public Use
  Company Number: US-ELI_LILLY_AND_COMPANY-US201212005516

PATIENT
  Sex: Female

DRUGS (2)
  1. GABAPENTIN. [Concomitant]
     Active Substance: GABAPENTIN
     Dosage: UNK
     Dates: start: 201211, end: 20121210
  2. FORTEO [Suspect]
     Active Substance: TERIPARATIDE
     Indication: OSTEOPOROSIS
     Dosage: 20 UG, QD
     Dates: start: 20121103, end: 20121210

REACTIONS (7)
  - Balance disorder [Unknown]
  - Memory impairment [Unknown]
  - Phobia of driving [Unknown]
  - Dysgeusia [Unknown]
  - Thinking abnormal [Recovering/Resolving]
  - Pain [Unknown]
  - Fall [Unknown]
